FAERS Safety Report 19315406 (Version 2)
Quarter: 2021Q2

REPORT INFORMATION
  Report Type: Spontaneous
  Country: PE (occurrence: PE)
  Receive Date: 20210527
  Receipt Date: 20210527
  Transmission Date: 20210717
  Serious: Yes (Other)
  Sender: FDA-Public Use
  Company Number: PE-PFIZER INC-2021547754

PATIENT
  Age: 25 Year
  Sex: Female

DRUGS (3)
  1. COLISTIN [Suspect]
     Active Substance: COLISTIN
     Indication: KLEBSIELLA INFECTION
     Dosage: 100 MG, 2X/DAY
     Route: 042
  2. MEROPENEM. [Suspect]
     Active Substance: MEROPENEM
     Indication: KLEBSIELLA INFECTION
     Dosage: 2G IV TID
     Route: 042
  3. COLISTIN [Suspect]
     Active Substance: COLISTIN
     Indication: ACINETOBACTER INFECTION
     Dosage: 10MG IN BOTH EVD

REACTIONS (4)
  - Bacterial infection [Recovered/Resolved]
  - CNS ventriculitis [Recovered/Resolved]
  - Hydrocephalus [Recovered/Resolved]
  - Drug resistance [Recovered/Resolved]
